FAERS Safety Report 25088098 (Version 2)
Quarter: 2025Q2

REPORT INFORMATION
  Report Type: Report from Study
  Country: US (occurrence: US)
  Receive Date: 20250318
  Receipt Date: 20250513
  Transmission Date: 20250717
  Serious: No
  Sender: SANDOZ
  Company Number: US-SANDOZ-SDZ2025US016177

PATIENT
  Age: 13 Year
  Sex: Male

DRUGS (4)
  1. OMNITROPE [Suspect]
     Active Substance: SOMATROPIN
     Dosage: 0.22 ML, QD
     Route: 058
     Dates: start: 20250305
  2. OMNITROPE [Suspect]
     Active Substance: SOMATROPIN
     Dosage: 0.22 ML, QD
     Route: 058
     Dates: start: 20250305
  3. OMNITROPE [Suspect]
     Active Substance: SOMATROPIN
     Indication: Hypopituitarism
     Dosage: 0.22 ML, QD
     Route: 058
     Dates: start: 202502
  4. OMNITROPE [Suspect]
     Active Substance: SOMATROPIN
     Indication: Hypopituitarism
     Dosage: 0.22 ML, QD
     Route: 058
     Dates: start: 202502

REACTIONS (2)
  - Injection site vesicles [Unknown]
  - Injection site pain [Not Recovered/Not Resolved]

NARRATIVE: CASE EVENT DATE: 20250305
